FAERS Safety Report 4880284-6 (Version None)
Quarter: 2006Q1

REPORT INFORMATION
  Report Type: 
  Country: None (occurrence: None)
  Receive Date: 20060113
  Receipt Date: 20060102
  Transmission Date: 20060701
  Serious: Yes (Life-Threatening, Hospitalization)
  Sender: FDA-Public Use
  Company Number: US-ROCHE-430472

PATIENT
  Age: 45 Year
  Sex: Female
  Weight: 80.8 kg

DRUGS (4)
  1. KETOROLAC TROMETHAMINE [Suspect]
     Indication: PAIN PROPHYLAXIS
     Route: 042
     Dates: start: 20050712, end: 20050712
  2. KETOROLAC TROMETHAMINE [Suspect]
     Route: 042
     Dates: start: 20050712, end: 20050713
  3. UNKNOWN,DRUG-BLINDED [Suspect]
     Indication: PROPHYLAXIS OF NAUSEA AND VOMITING
     Route: 048
     Dates: start: 20050712, end: 20050713
  4. ZOFRAN [Suspect]
     Indication: PROPHYLAXIS OF NAUSEA AND VOMITING
     Route: 065
     Dates: start: 20050712, end: 20050712

REACTIONS (7)
  - ABDOMINAL PAIN [None]
  - DIZZINESS [None]
  - HAEMATOCRIT DECREASED [None]
  - INTRA-ABDOMINAL HAEMORRHAGE [None]
  - ORTHOSTATIC HYPOTENSION [None]
  - POST PROCEDURAL HAEMORRHAGE [None]
  - SYNCOPE [None]
